FAERS Safety Report 10161397 (Version 2)
Quarter: 2014Q2

REPORT INFORMATION
  Report Type: Spontaneous
  Country: ES (occurrence: ES)
  Receive Date: 20140509
  Receipt Date: 20140521
  Transmission Date: 20141212
  Serious: Yes (Hospitalization)
  Sender: FDA-Public Use
  Company Number: ES-BEH-2014042451

PATIENT
  Age: 75 Year
  Sex: Female
  Weight: 64 kg

DRUGS (8)
  1. PRIVIGEN [Suspect]
     Indication: THROMBOCYTOPENIA
     Dosage: 70GR 24H X 2 DOSES
     Route: 042
     Dates: end: 20101123
  2. LEVOTHYROXINE [Concomitant]
     Dosage: 75MG 1-0-0
  3. OMEPRAZOLE [Concomitant]
     Dosage: 20MG 1-0-0
  4. INDAPAMIDE [Concomitant]
     Dosage: 2.5 MG 1/2-0-0
  5. LORAZEPAM [Concomitant]
     Dosage: 0-0-1
  6. SIMVASTATIN [Concomitant]
     Dosage: 10 MG 0-0-1
  7. GLUCOSAMINE [Concomitant]
  8. CHONDROITIN SUPHATE [Concomitant]

REACTIONS (1)
  - Transient ischaemic attack [Recovered/Resolved]
